FAERS Safety Report 4784382-7 (Version None)
Quarter: 2005Q3

REPORT INFORMATION
  Report Type: 
  Country: None (occurrence: None)
  Receive Date: 20050928
  Receipt Date: 20050916
  Transmission Date: 20060218
  Serious: Yes (Hospitalization)
  Sender: FDA-Public Use
  Company Number: 002#4#2005-00310

PATIENT
  Age: 49 Year
  Sex: Female
  Weight: 70.3075 kg

DRUGS (6)
  1. REGLAN [Suspect]
     Indication: GASTROOESOPHAGEAL REFLUX DISEASE
     Dosage: 1 IN 1 D, ORAL
     Route: 048
     Dates: start: 19970101, end: 19970101
  2. REGLAN [Suspect]
     Indication: VOMITING
     Dosage: 1 IN 1 D, ORAL
     Route: 048
     Dates: start: 19970101, end: 19970101
  3. REGLAN [Suspect]
     Indication: POST PROCEDURAL NAUSEA
     Dosage: 1ONCE
     Dates: start: 20030101, end: 20030101
  4. VERAPAMIL [Concomitant]
  5. LEVOTHYROXINE [Concomitant]
  6. CITALOPRAM [Concomitant]

REACTIONS (3)
  - FLUID INTAKE REDUCED [None]
  - PNEUMONIA ASPIRATION [None]
  - TARDIVE DYSKINESIA [None]
